FAERS Safety Report 24346509 (Version 1)
Quarter: 2024Q3

REPORT INFORMATION
  Report Type: Spontaneous
  Country: ES (occurrence: ES)
  Receive Date: 20240921
  Receipt Date: 20240921
  Transmission Date: 20241017
  Serious: Yes (Other)
  Sender: ROCHE
  Company Number: ES-ROCHE-10000083576

PATIENT
  Age: 64 Year
  Sex: Male

DRUGS (2)
  1. MABTHERA [Suspect]
     Active Substance: RITUXIMAB
     Indication: B-cell lymphoma
     Route: 065
  2. BENDAMUSTINE [Suspect]
     Active Substance: BENDAMUSTINE
     Indication: B-cell lymphoma
     Route: 065

REACTIONS (4)
  - Lymphoma transformation [Unknown]
  - Follicular lymphoma [Unknown]
  - Lymphoma transformation [Unknown]
  - Disease progression [Unknown]

NARRATIVE: CASE EVENT DATE: 20240901
